FAERS Safety Report 7772075-3 (Version None)
Quarter: 2011Q3

REPORT INFORMATION
  Report Type: 
  Country: None (occurrence: None)
  Receive Date: 20110922
  Receipt Date: 20100412
  Transmission Date: 20111222
  Serious: Yes (Other)
  Sender: FDA-Public Use
  Company Number: US-ASTRAZENECA-2009SE13375

PATIENT
  Age: 768 Month
  Sex: Male
  Weight: 80 kg

DRUGS (2)
  1. SEROQUEL [Suspect]
     Dosage: 25 TO 300 MG DAILY
     Route: 048
     Dates: start: 20051005
  2. SERTRALINE HYDROCHLORIDE [Concomitant]
     Indication: AFFECTIVE DISORDER
     Dosage: 50 TO 100 MG DAILY
     Route: 048
     Dates: start: 19970505

REACTIONS (2)
  - DIABETES MELLITUS [None]
  - RENAL FAILURE [None]
